FAERS Safety Report 20789679 (Version 1)
Quarter: 2022Q2

REPORT INFORMATION
  Report Type: Spontaneous
  Country: DE (occurrence: DE)
  Receive Date: 20220505
  Receipt Date: 20220505
  Transmission Date: 20220720
  Serious: Yes (Other)
  Sender: FDA-Public Use
  Company Number: DE-PFIZER INC-202200544905

PATIENT
  Sex: Female

DRUGS (3)
  1. AZULFIDINE [Suspect]
     Active Substance: SULFASALAZINE
     Dosage: IN THE MORNING 2 AZULFIDINE AND IN THE EVENING 2
  2. AZULFIDINE [Suspect]
     Active Substance: SULFASALAZINE
     Dosage: BUT HAS ALSO BEEN AT 2-2-2
  3. LEFLUNOMIDE [Concomitant]
     Active Substance: LEFLUNOMIDE
     Dosage: 1X

REACTIONS (1)
  - Iron deficiency [Not Recovered/Not Resolved]
